FAERS Safety Report 9892367 (Version 4)
Quarter: 2014Q2

REPORT INFORMATION
  Report Type: Spontaneous
  Country: JP (occurrence: JP)
  Receive Date: 20140212
  Receipt Date: 20140418
  Transmission Date: 20141212
  Serious: Yes (Death)
  Sender: FDA-Public Use
  Company Number: JP-ELI_LILLY_AND_COMPANY-JP201402002145

PATIENT
  Age: 77 Year
  Sex: Female

DRUGS (5)
  1. FORTEO [Suspect]
     Indication: OSTEOPOROSIS
     Dosage: 20 UG, QD
     Route: 058
     Dates: start: 20130919, end: 20131128
  2. REMERON [Concomitant]
     Dosage: UNK
     Route: 048
     Dates: start: 20131107
  3. MYSLEE [Concomitant]
     Dosage: UNK
     Route: 048
     Dates: start: 20131107
  4. SENNOSIDE                          /00571901/ [Concomitant]
     Dosage: UNK
     Route: 048
     Dates: start: 20131107
  5. CELECOX [Concomitant]
     Dosage: UNK
     Route: 048
     Dates: start: 20131107

REACTIONS (2)
  - Drowning [Fatal]
  - Cerebral haemorrhage [Fatal]
